FAERS Safety Report 6691373-8 (Version None)
Quarter: 2010Q2

REPORT INFORMATION
  Report Type: 
  Country: None (occurrence: None)
  Receive Date: 20100422
  Receipt Date: 20100419
  Transmission Date: 20101027
  Serious: Yes (Other)
  Sender: FDA-Public Use
  Company Number: US-ASTRAZENECA-2007UW03818

PATIENT
  Age: 610 Month
  Sex: Female
  Weight: 91.6 kg

DRUGS (36)
  1. SEROQUEL [Suspect]
     Indication: SCHIZOPHRENIA
     Route: 048
     Dates: start: 19980601
  2. SEROQUEL [Suspect]
     Indication: ANXIETY
     Route: 048
     Dates: start: 19980601
  3. SEROQUEL [Suspect]
     Dosage: 25-400MG
     Route: 048
     Dates: start: 20011005
  4. SEROQUEL [Suspect]
     Dosage: 25-400MG
     Route: 048
     Dates: start: 20011005
  5. SEROQUEL [Suspect]
     Dosage: 200 MG TABLET,TAKE 2 TABLETS BEDTIME,300 MG AT QHS
     Route: 048
     Dates: start: 20061201
  6. SEROQUEL [Suspect]
     Dosage: 200 MG TABLET,TAKE 2 TABLETS BEDTIME,300 MG AT QHS
     Route: 048
     Dates: start: 20061201
  7. GLUCOTROL XL [Concomitant]
     Route: 048
     Dates: start: 20060417
  8. NEXIUM [Concomitant]
     Route: 048
  9. NEXIUM [Concomitant]
     Route: 048
     Dates: start: 20060417
  10. METFORMIN HCL [Concomitant]
     Route: 048
     Dates: start: 20060417
  11. TRAZODONE [Concomitant]
     Dosage: 50MG TO 150MG
     Route: 048
     Dates: start: 20060101
  12. BUSPAR [Concomitant]
     Dosage: 5MG TO 10MG, 30 MG
     Route: 048
     Dates: start: 20061201
  13. KENALOG IN ORABASE [Concomitant]
     Dosage: 1/4 INCH
     Route: 002
  14. PROMETHAZINE [Concomitant]
     Route: 048
     Dates: start: 20060417
  15. RISPERIDONE [Concomitant]
     Route: 048
  16. CYCLOBENZAPRINE [Concomitant]
     Route: 048
  17. METHOCARBAMOL [Concomitant]
     Route: 048
  18. AZITHROMYCIN [Concomitant]
     Route: 048
  19. ALBUTEROL [Concomitant]
     Dosage: 90MCG/ACT, EVERY 4 HOURS AS  NEEDED
  20. PROZAC [Concomitant]
     Dosage: 20MG TO 40MG
     Route: 048
     Dates: start: 20061201
  21. VALIUM [Concomitant]
     Route: 048
  22. STELAZINE [Concomitant]
     Route: 048
  23. ARTANE [Concomitant]
  24. ELAVIL [Concomitant]
  25. MAXZIDE [Concomitant]
     Route: 048
  26. BISACODYL [Concomitant]
     Dosage: 5 MG 2 TABS ONCE A DAY
     Route: 048
  27. SULINDAC [Concomitant]
     Route: 048
  28. LOVASTATIN [Concomitant]
     Route: 048
     Dates: start: 20060417
  29. GEODON [Concomitant]
     Dosage: 20 TO 80MG
     Route: 048
  30. PENICILLIN V [Concomitant]
     Route: 048
  31. MEPERIDINE HCL [Concomitant]
     Route: 042
  32. MIDAZOLAM HCL [Concomitant]
     Route: 042
  33. ZYPREXA [Concomitant]
     Indication: DEPRESSION
     Dates: start: 19970101
  34. ZYPREXA [Concomitant]
     Indication: SCHIZOPHRENIA
     Dates: start: 19970101
  35. LISINOPRIL [Concomitant]
     Route: 048
     Dates: start: 20060417
  36. TRAZODONE HCL [Concomitant]
     Route: 048
     Dates: start: 20070301

REACTIONS (6)
  - DIABETES MELLITUS INADEQUATE CONTROL [None]
  - DIABETIC GASTROPARESIS [None]
  - DIABETIC NEUROPATHY [None]
  - DIABETIC RETINOPATHY [None]
  - TYPE 2 DIABETES MELLITUS [None]
  - WEIGHT INCREASED [None]
